FAERS Safety Report 6400587-3 (Version None)
Quarter: 2009Q4

REPORT INFORMATION
  Report Type: 
  Country: None (occurrence: None)
  Receive Date: 20091014
  Receipt Date: 20090930
  Transmission Date: 20100525
  Serious: Yes (Other)
  Sender: FDA-Public Use
  Company Number: PHHY2009DK42416

PATIENT
  Age: 61 Year
  Sex: Male

DRUGS (4)
  1. METHYLPHENIDATE HCL [Suspect]
     Indication: DEPRESSED LEVEL OF CONSCIOUSNESS
     Dosage: 10 MG, BID
     Dates: start: 20050428
  2. METHYLPHENIDATE HCL [Suspect]
     Dosage: 20 MG + 10 MG
  3. METHYLPHENIDATE HCL [Suspect]
     Dosage: 10 MG, TID
     Dates: start: 20060201
  4. METHYLPHENIDATE HCL [Suspect]
     Dosage: 20 MG, TID
     Dates: end: 20071201

REACTIONS (14)
  - AMNESIA [None]
  - APALLIC SYNDROME [None]
  - BALANCE DISORDER [None]
  - COGNITIVE DISORDER [None]
  - COORDINATION ABNORMAL [None]
  - DEPRESSED LEVEL OF CONSCIOUSNESS [None]
  - DYSPHEMIA [None]
  - DYSPHONIA [None]
  - DYSTONIA [None]
  - EYE MOVEMENT DISORDER [None]
  - FATIGUE [None]
  - LISTLESS [None]
  - MENTAL STATUS CHANGES [None]
  - POVERTY OF SPEECH [None]
